FAERS Safety Report 10685424 (Version 2)
Quarter: 2015Q1

REPORT INFORMATION
  Report Type: Report from Study
  Country: FR (occurrence: FR)
  Receive Date: 20141231
  Receipt Date: 20150122
  Transmission Date: 20150720
  Serious: Yes (Hospitalization)
  Sender: FDA-Public Use
  Company Number: PHHO2014FR017256

PATIENT
  Age: 60 Year
  Sex: Male
  Weight: 80 kg

DRUGS (2)
  1. AFINITOR [Suspect]
     Active Substance: EVEROLIMUS
     Indication: NEOPLASM
     Dosage: 5 MG, UNK
     Route: 048
     Dates: start: 20141209
  2. SORAFENIB [Suspect]
     Active Substance: SORAFENIB
     Indication: NEOPLASM
     Dosage: 200 MG, BID
     Route: 065
     Dates: start: 20141201, end: 20141222

REACTIONS (1)
  - Sepsis [Not Recovered/Not Resolved]

NARRATIVE: CASE EVENT DATE: 20141226
